FAERS Safety Report 13350374 (Version 1)
Quarter: 2017Q1

REPORT INFORMATION
  Report Type: Spontaneous
  Country: US (occurrence: US)
  Receive Date: 20170320
  Receipt Date: 20170320
  Transmission Date: 20170429
  Serious: No
  Sender: FDA-Public Use
  Company Number: US-BIOMARINAP-US-2017-113122

PATIENT
  Sex: Female

DRUGS (1)
  1. NAGLAZYME [Suspect]
     Active Substance: GALSULFASE
     Indication: MUCOPOLYSACCHARIDOSIS IV
     Dosage: 45 MG, QW
     Route: 042
     Dates: start: 20161020

REACTIONS (3)
  - Pyrexia [Unknown]
  - Oropharyngeal pain [Unknown]
  - Rhinorrhoea [Unknown]
